FAERS Safety Report 21307441 (Version 1)
Quarter: 2022Q3

REPORT INFORMATION
  Report Type: Spontaneous
  Country: US (occurrence: US)
  Receive Date: 20220908
  Receipt Date: 20220908
  Transmission Date: 20221027
  Serious: Yes (Other)
  Sender: FDA-Public Use
  Company Number: US-PFIZER INC-PV202200058934

PATIENT
  Age: 44 Year
  Sex: Male

DRUGS (2)
  1. SIROLIMUS [Suspect]
     Active Substance: SIROLIMUS
     Dosage: 0.5 MG, 1X/DAY (TAKE 1 TABLET BY MOUTH 1 TIME EACH DAY, QUANTITY 90)
     Route: 048
  2. SIROLIMUS [Suspect]
     Active Substance: SIROLIMUS
     Dosage: 1 MG, 1X/DAY (TAKE 1 TABLET BY MOUTH 1 TIME EACH DAY, QUANTITY 90)
     Route: 048

REACTIONS (2)
  - Sepsis [Unknown]
  - Renal disorder [Unknown]
